FAERS Safety Report 22227518 (Version 1)
Quarter: 2023Q2

REPORT INFORMATION
  Report Type: Spontaneous
  Country: CN (occurrence: CN)
  Receive Date: 20230419
  Receipt Date: 20230419
  Transmission Date: 20230722
  Serious: Yes (Other)
  Sender: FDA-Public Use
  Company Number: CN-ELI_LILLY_AND_COMPANY-CN202304007575

PATIENT
  Age: 65 Year
  Sex: Male
  Weight: 62 kg

DRUGS (6)
  1. GEMCITABINE HYDROCHLORIDE [Suspect]
     Active Substance: GEMCITABINE HYDROCHLORIDE
     Indication: Carcinoid tumour pulmonary
     Dosage: 1700 MG, DAILY
     Route: 041
     Dates: start: 20230317, end: 20230317
  2. CARBOPLATIN [Suspect]
     Active Substance: CARBOPLATIN
     Indication: Carcinoid tumour pulmonary
     Dosage: 450 MG, DAILY
     Route: 041
     Dates: start: 20230317, end: 20230317
  3. SINTILIMAB [Suspect]
     Active Substance: SINTILIMAB
     Indication: Carcinoid tumour pulmonary
     Dosage: 200 MG, DAILY
     Route: 041
     Dates: start: 20230317, end: 20230317
  4. SODIUM CHLORIDE [Concomitant]
     Active Substance: SODIUM CHLORIDE
     Indication: Vehicle solution use
     Dosage: 100 ML, DAILY
     Route: 041
     Dates: start: 20230317, end: 20230317
  5. SODIUM CHLORIDE [Concomitant]
     Active Substance: SODIUM CHLORIDE
     Dosage: 100 ML, DAILY
     Route: 041
     Dates: start: 20230317, end: 20230317
  6. DEXTROSE [Concomitant]
     Active Substance: DEXTROSE\DEXTROSE MONOHYDRATE
     Indication: Vehicle solution use
     Dosage: 500 ML, DAILY
     Route: 041
     Dates: start: 20230317, end: 20230317

REACTIONS (1)
  - Pruritus [Recovering/Resolving]

NARRATIVE: CASE EVENT DATE: 20230317
